FAERS Safety Report 9670863 (Version 1)
Quarter: 2013Q4

REPORT INFORMATION
  Report Type: Report from Study
  Country: BR (occurrence: BR)
  Receive Date: 20131106
  Receipt Date: 20131106
  Transmission Date: 20140711
  Serious: Yes (Other)
  Sender: FDA-Public Use
  Company Number: PHHY2013BR124424

PATIENT
  Sex: Female

DRUGS (5)
  1. ACLASTA [Suspect]
     Indication: OSTEOPOROSIS
     Dosage: 5 MG
     Route: 042
     Dates: start: 2012
  2. ANALGESICS [Concomitant]
     Indication: PAIN
  3. CALCIUM [Concomitant]
     Dosage: UNK
     Dates: start: 2012
  4. RIVOTRIL [Concomitant]
     Dosage: UNK
     Dates: start: 2012
  5. CORTICOSTEROID NOS [Concomitant]
     Dosage: UNK

REACTIONS (9)
  - Panic disorder [Unknown]
  - Depression [Unknown]
  - Haematochezia [Unknown]
  - Femur fracture [Unknown]
  - Foot fracture [Unknown]
  - Fall [Unknown]
  - Heart rate increased [Unknown]
  - Blood pressure fluctuation [Unknown]
  - Abdominal pain upper [Unknown]
